FAERS Safety Report 14669513 (Version 1)
Quarter: 2018Q1

REPORT INFORMATION
  Report Type: Report from Study
  Country: None (occurrence: BE)
  Receive Date: 20180322
  Receipt Date: 20180322
  Transmission Date: 20180509
  Serious: Yes (Death, Hospitalization, Other)
  Sender: FDA-Public Use
  Company Number: BE-ABBVIE-18K-013-2291818-00

PATIENT
  Age: 80 Year
  Sex: Female

DRUGS (4)
  1. DUODOPA [Suspect]
     Active Substance: CARBIDOPA\LEVODOPA
     Dosage: DOSES CONTINUOUSLY MONITORED AND ADAPTED
     Route: 050
     Dates: start: 20090313, end: 20150921
  2. DUODOPA [Suspect]
     Active Substance: CARBIDOPA\LEVODOPA
     Dosage: MD=2.5ML??CD=3.5ML/HR DURING 16HRS ??ED=1.8ML
     Route: 050
     Dates: start: 20150921
  3. DUODOPA [Suspect]
     Active Substance: CARBIDOPA\LEVODOPA
     Dosage: MD=6.5ML??CD=2.2ML/HR DURING 16HRS
     Route: 050
     Dates: start: 20090122, end: 20090313
  4. DUODOPA [Suspect]
     Active Substance: CARBIDOPA\LEVODOPA
     Indication: PARKINSON^S DISEASE
     Route: 050
     Dates: start: 20081103, end: 20090122

REACTIONS (8)
  - Death [Fatal]
  - Bedridden [Unknown]
  - General physical health deterioration [Unknown]
  - Coma [Unknown]
  - Unresponsive to stimuli [Unknown]
  - Device issue [Recovered/Resolved]
  - Decubitus ulcer [Unknown]
  - Wound infection [Unknown]

NARRATIVE: CASE EVENT DATE: 201803
